FAERS Safety Report 9193978 (Version 1)
Quarter: 2013Q1

REPORT INFORMATION
  Report Type: Spontaneous
  Country: IT (occurrence: IT)
  Receive Date: 20130327
  Receipt Date: 20130327
  Transmission Date: 20140127
  Serious: Yes (Hospitalization)
  Sender: FDA-Public Use
  Company Number: IT-BAYER-2013-035176

PATIENT
  Age: 81 Year
  Sex: Male

DRUGS (10)
  1. CARDIOASPIRIN [Suspect]
     Indication: PROPHYLAXIS
     Dosage: 100 MG, QD
     Route: 048
     Dates: start: 20120401
  2. CLEXANE [Suspect]
     Indication: PROPHYLAXIS
     Dosage: DAILY DOSE 4000 IU
     Route: 058
     Dates: start: 20130224
  3. DOMPERIDONE [Concomitant]
     Dosage: DAILY DOSE 2 DF
     Route: 048
  4. BISOPROLOL [Concomitant]
     Dosage: DAILY DOSE 2.5 MG
     Route: 048
  5. ATORVASTATIN [Concomitant]
     Dosage: DAILY DOSE 10 MG
     Route: 048
  6. PANTOPRAZOLE [Concomitant]
     Dosage: DAILY DOSE 40 MG
     Route: 048
  7. ALLOPURINOL [Concomitant]
     Dosage: DAILY DOSE 150 MG
     Route: 048
  8. AMIODARONE [Concomitant]
     Dosage: DAILY DOSE 1 DF
     Route: 048
  9. LASIX [Concomitant]
     Dosage: DAILY DOSE 100 MG
     Route: 048
  10. KANRENOL [Concomitant]
     Dosage: DAILY DOSE 25 MG
     Route: 048

REACTIONS (2)
  - Implant site haematoma [Recovering/Resolving]
  - Anaemia [Recovering/Resolving]
